FAERS Safety Report 7951135-8 (Version None)
Quarter: 2011Q4

REPORT INFORMATION
  Report Type: 
  Country: None (occurrence: None)
  Receive Date: 20111201
  Receipt Date: 20111123
  Transmission Date: 20120403
  Serious: Yes (Hospitalization, Other)
  Sender: FDA-Public Use
  Company Number: FR-BRISTOL-MYERS SQUIBB COMPANY-16248999

PATIENT
  Age: 81 Year
  Sex: Male

DRUGS (10)
  1. JANUVIA [Concomitant]
  2. ACETAMINOPHEN [Concomitant]
  3. SOTALOL HCL [Concomitant]
  4. IRBESARTAN [Concomitant]
  5. PLAVIX [Concomitant]
  6. UVEDOSE [Concomitant]
     Dates: start: 20110901
  7. SIMVASTATIN [Concomitant]
  8. FUROSEMIDE [Concomitant]
  9. COUMADIN [Suspect]
     Route: 048
     Dates: start: 20110118, end: 20110901
  10. ALLOPURINOL [Concomitant]

REACTIONS (3)
  - GASTROINTESTINAL HAEMORRHAGE [None]
  - DIVERTICULUM INTESTINAL [None]
  - DUODENITIS [None]
